FAERS Safety Report 6093582-8 (Version None)
Quarter: 2009Q1

REPORT INFORMATION
  Report Type: 
  Country: None (occurrence: None)
  Receive Date: 20090226
  Receipt Date: 20090216
  Transmission Date: 20090719
  Serious: Yes (Hospitalization)
  Sender: FDA-Public Use
  Company Number: FR-PFIZER INC-2009170445

PATIENT

DRUGS (4)
  1. LYRICA [Suspect]
     Indication: NEURALGIA
     Dosage: UNK
     Dates: start: 20090122
  2. DURAGESIC-100 [Suspect]
  3. LAMALINE [Suspect]
  4. NORSET [Suspect]

REACTIONS (5)
  - EPILEPSY [None]
  - GAMMA-GLUTAMYLTRANSFERASE INCREASED [None]
  - HUMERUS FRACTURE [None]
  - TRANSAMINASES INCREASED [None]
  - VOMITING [None]
